FAERS Safety Report 6725900-9 (Version None)
Quarter: 2010Q2

REPORT INFORMATION
  Report Type: 
  Country: None (occurrence: None)
  Receive Date: 20100514
  Receipt Date: 20100423
  Transmission Date: 20101027
  Serious: Yes (Death)
  Sender: FDA-Public Use
  Company Number: PHEH2009US18947

PATIENT
  Sex: Male

DRUGS (2)
  1. GLEEVEC [Suspect]
     Indication: SYSTEMIC SCLEROSIS
     Dosage: 200 MG, QD
     Route: 048
     Dates: start: 20090301, end: 20090301
  2. COUMADIN [Concomitant]
     Dosage: UNK, UNK

REACTIONS (1)
  - DEATH [None]
